FAERS Safety Report 7357045-1 (Version None)
Quarter: 2011Q1

REPORT INFORMATION
  Report Type: 
  Country: None (occurrence: None)
  Receive Date: 20110308
  Receipt Date: 20110209
  Transmission Date: 20110831
  Serious: No
  Sender: FDA-Public Use
  Company Number: LEO-2011-00120

PATIENT
  Age: 88 Year
  Sex: Female

DRUGS (2)
  1. INNOHEP [Suspect]
     Indication: THROMBOSIS PROPHYLAXIS
     Dosage: 4500 IU (4500 IU, 1 IN 1 D), SUBCUTANEOUS
     Route: 059
     Dates: start: 20110101, end: 20110101
  2. INNOHEP [Suspect]
     Indication: JOINT STABILISATION
     Dosage: 4500 IU (4500 IU, 1 IN 1 D), SUBCUTANEOUS
     Route: 059
     Dates: start: 20110101, end: 20110101

REACTIONS (2)
  - OFF LABEL USE [None]
  - HAEMATOMA [None]
